FAERS Safety Report 9687319 (Version 2)
Quarter: 2014Q1

REPORT INFORMATION
  Report Type: Spontaneous
  Country: AU (occurrence: AU)
  Receive Date: 20131114
  Receipt Date: 20140124
  Transmission Date: 20141002
  Serious: Yes (Death)
  Sender: FDA-Public Use
  Company Number: AU-ROCHE-1301516

PATIENT
  Age: 87 Year
  Sex: 0

DRUGS (1)
  1. ACTILYSE [Suspect]
     Indication: CEREBRAL INFARCTION
     Dosage: INDICATION: LEFT ANTERIOR CEREBRAL ARTERY, POSTERIOR CEREBRAL ARTERY INFARCT AND MIDDLE CEREBRAL ART
     Route: 065
     Dates: start: 20130330

REACTIONS (1)
  - Death [Fatal]
